FAERS Safety Report 13507508 (Version 6)
Quarter: 2017Q3

REPORT INFORMATION
  Report Type: Report from Study
  Country: ZA (occurrence: ZA)
  Receive Date: 20170503
  Receipt Date: 20170829
  Transmission Date: 20171127
  Serious: Yes (Hospitalization, Other)
  Sender: FDA-Public Use
  Company Number: ZA-BRISTOL-MYERS SQUIBB COMPANY-BMS-2017-036572

PATIENT
  Age: 57 Year
  Sex: Female

DRUGS (1)
  1. ABATACEPT [Suspect]
     Active Substance: ABATACEPT
     Indication: RHEUMATOID ARTHRITIS
     Dosage: 125 MG, QWK
     Route: 058
     Dates: start: 200901

REACTIONS (17)
  - Colitis [Not Recovered/Not Resolved]
  - Abdominal pain [Unknown]
  - Ulcer [Unknown]
  - Nausea [Unknown]
  - Eye pain [Unknown]
  - Nephritis [Unknown]
  - Drug ineffective [Not Recovered/Not Resolved]
  - Kidney enlargement [Unknown]
  - Headache [Recovered/Resolved]
  - Renal stone removal [Unknown]
  - Pain [Unknown]
  - Ocular neoplasm [Recovered/Resolved]
  - Tumour excision [Unknown]
  - Nephrolithiasis [Recovered/Resolved]
  - Diarrhoea [Not Recovered/Not Resolved]
  - Back pain [Unknown]
  - Weight decreased [Unknown]

NARRATIVE: CASE EVENT DATE: 2013
